FAERS Safety Report 11459558 (Version 1)
Quarter: 2015Q3

REPORT INFORMATION
  Report Type: Spontaneous
  Country: US (occurrence: US)
  Receive Date: 20150904
  Receipt Date: 20150904
  Transmission Date: 20151125
  Serious: No
  Sender: FDA-Public Use
  Company Number: US-TARO-2015TAR00328

PATIENT
  Sex: Male
  Weight: 78.91 kg

DRUGS (6)
  1. WARFARIN SODIUM TABLETS USP 6MG [Suspect]
     Active Substance: WARFARIN SODIUM
     Dosage: 6 MG, 5X/WEEK
     Route: 048
  2. LEVOTHYROXINE. [Concomitant]
     Active Substance: LEVOTHYROXINE
  3. WARFARIN SODIUM TABLETS USP 6MG [Suspect]
     Active Substance: WARFARIN SODIUM
     Dosage: 9 MG, 1X/WEEK
     Route: 048
  4. WARFARIN SODIUM TABLETS USP 1MG [Suspect]
     Active Substance: WARFARIN SODIUM
     Indication: THROMBOSIS
     Dosage: 0.5 MG, 5X/WEEK
     Route: 048
  5. DONEPEZIL. [Concomitant]
     Active Substance: DONEPEZIL
     Dosage: 5 MG, UNK
  6. WARFARIN SODIUM TABLETS USP 6MG [Suspect]
     Active Substance: WARFARIN SODIUM
     Indication: THROMBOSIS
     Dosage: 6 MG, 1X/DAY
     Route: 048
     Dates: start: 2012

REACTIONS (3)
  - International normalised ratio fluctuation [Not Recovered/Not Resolved]
  - Fall [Recovered/Resolved]
  - Contusion [Not Recovered/Not Resolved]
